FAERS Safety Report 17839122 (Version 1)
Quarter: 2020Q2

REPORT INFORMATION
  Report Type: Spontaneous
  Country: US (occurrence: US)
  Receive Date: 20200529
  Receipt Date: 20200529
  Transmission Date: 20200714
  Serious: Yes (Other)
  Sender: FDA-Public Use
  Company Number: US-CIPLA LTD.-2020US03575

PATIENT

DRUGS (3)
  1. FLECAINIDE [Suspect]
     Active Substance: FLECAINIDE
     Indication: VENTRICULAR TACHYCARDIA
     Dosage: 150 MILLIGRAM, BID
     Route: 065
  2. FLECAINIDE [Suspect]
     Active Substance: FLECAINIDE
     Dosage: 200 MILLIGRAM, BID
     Route: 065
  3. NADOLOL. [Suspect]
     Active Substance: NADOLOL
     Indication: VENTRICULAR TACHYCARDIA
     Dosage: 60 MILLIGRAM, BID
     Route: 065

REACTIONS (4)
  - Syncope [Recovering/Resolving]
  - Sinus bradycardia [Recovering/Resolving]
  - Ventricular tachycardia [Recovering/Resolving]
  - Ventricular extrasystoles [Recovering/Resolving]
